FAERS Safety Report 20472791 (Version 1)
Quarter: 2022Q1

REPORT INFORMATION
  Report Type: Spontaneous
  Country: IL (occurrence: IL)
  Receive Date: 20220215
  Receipt Date: 20220215
  Transmission Date: 20220423
  Serious: Yes (Other)
  Sender: FDA-Public Use
  Company Number: IL-ABBVIE-22K-082-4277964-00

PATIENT
  Age: 49 Year
  Sex: Female

DRUGS (6)
  1. LEUPROLIDE ACETATE [Suspect]
     Active Substance: LEUPROLIDE ACETATE
     Indication: Hormone suppression therapy
     Route: 065
     Dates: start: 201710
  2. LEUPROLIDE ACETATE [Suspect]
     Active Substance: LEUPROLIDE ACETATE
     Indication: Therapeutic ovarian suppression
  3. PALBOCICLIB [Concomitant]
     Active Substance: PALBOCICLIB
     Indication: Product used for unknown indication
     Dates: start: 201710
  4. LETROZOLE [Concomitant]
     Active Substance: LETROZOLE
     Indication: Product used for unknown indication
     Dates: start: 201710
  5. RECLAST [Concomitant]
     Active Substance: ZOLEDRONIC ACID
     Indication: Organ preservation
     Dates: start: 201710
  6. RECLAST [Concomitant]
     Active Substance: ZOLEDRONIC ACID
     Indication: Bone disorder

REACTIONS (2)
  - Metastases to bone [Unknown]
  - Metastases to liver [Unknown]

NARRATIVE: CASE EVENT DATE: 20190601
